FAERS Safety Report 15747036 (Version 4)
Quarter: 2019Q2

REPORT INFORMATION
  Report Type: Report from Study
  Country: US (occurrence: US)
  Receive Date: 20181220
  Receipt Date: 20190425
  Transmission Date: 20190711
  Serious: Yes (Hospitalization)
  Sender: FDA-Public Use
  Company Number: PHEH2018US053150

PATIENT
  Sex: Male

DRUGS (1)
  1. ENTRESTO [Suspect]
     Active Substance: SACUBITRIL\VALSARTAN
     Indication: CARDIAC FAILURE CONGESTIVE
     Route: 048

REACTIONS (5)
  - Chromaturia [Recovered/Resolved]
  - Prostatic disorder [Unknown]
  - Skin exfoliation [Unknown]
  - Blood glucose decreased [Unknown]
  - Pruritus [Unknown]
